FAERS Safety Report 8099712-0 (Version None)
Quarter: 2012Q1

REPORT INFORMATION
  Report Type: 
  Country: None (occurrence: None)
  Receive Date: 20120129
  Receipt Date: 20110906
  Transmission Date: 20120608
  Serious: No
  Sender: FDA-Public Use
  Company Number: US-ABBOTT-11P-163-0852079-00

PATIENT
  Sex: Female
  Weight: 90.8 kg

DRUGS (1)
  1. HUMIRA [Suspect]
     Indication: PSORIASIS
     Dates: start: 20060101, end: 20070101

REACTIONS (10)
  - LOWER RESPIRATORY TRACT INFECTION [None]
  - ONYCHOMYCOSIS [None]
  - PAIN IN EXTREMITY [None]
  - FATIGUE [None]
  - BRADYPHRENIA [None]
  - ERYTHEMA [None]
  - UPPER RESPIRATORY TRACT INFECTION [None]
  - MALAISE [None]
  - NECK PAIN [None]
  - FEELING ABNORMAL [None]
